FAERS Safety Report 9475301 (Version 1)
Quarter: 2013Q3

REPORT INFORMATION
  Report Type: Report from Study
  Country: BE (occurrence: BE)
  Receive Date: 20130826
  Receipt Date: 20130826
  Transmission Date: 20140515
  Serious: Yes (Hospitalization)
  Sender: FDA-Public Use
  Company Number: BE-ROCHE-1264080

PATIENT
  Age: 80 Year
  Sex: Female
  Weight: 71 kg

DRUGS (6)
  1. BEVACIZUMAB [Suspect]
     Indication: COLORECTAL CANCER
     Route: 065
  2. 5-FU [Suspect]
     Indication: RECTAL CANCER METASTATIC
     Route: 042
     Dates: end: 20130807
  3. EMCORETIC [Concomitant]
     Indication: HYPERTENSION
     Route: 048
     Dates: start: 2000
  4. ENALAPRIL [Concomitant]
     Indication: HYPERTENSION
     Route: 048
     Dates: start: 2000
  5. CLEXANE MULTI [Concomitant]
     Indication: PROPHYLAXIS
     Route: 058
     Dates: start: 20130702
  6. CENTRUM [Concomitant]
     Dosage: 1 TABLET
     Route: 048
     Dates: start: 20130625

REACTIONS (5)
  - Nausea [Recovered/Resolved]
  - Gastrointestinal inflammation [Recovered/Resolved]
  - Diarrhoea [Recovered/Resolved]
  - Abdominal pain [Unknown]
  - Stress urinary incontinence [Unknown]
